FAERS Safety Report 4756059-5 (Version None)
Quarter: 2005Q3

REPORT INFORMATION
  Report Type: 
  Country: None (occurrence: None)
  Receive Date: 20050829
  Receipt Date: 20050829
  Transmission Date: 20060218
  Serious: Yes (Death, Hospitalization)
  Sender: FDA-Public Use
  Company Number: None

PATIENT
  Sex: Female
  Weight: 15 kg

DRUGS (5)
  1. TISSUE STEM CELL TRANSPLANT [Suspect]
     Dates: start: 20041008
  2. . [Concomitant]
  3. . [Concomitant]
  4. . [Concomitant]
  5. . [Concomitant]

REACTIONS (8)
  - APNOEA [None]
  - HYPOXIA [None]
  - NEUTROPHIL COUNT DECREASED [None]
  - OPERATIVE HAEMORRHAGE [None]
  - PNEUMOCYSTIS JIROVECI PNEUMONIA [None]
  - PULSE ABSENT [None]
  - TACHYCARDIA [None]
  - TACHYPNOEA [None]
